FAERS Safety Report 18324400 (Version 1)
Quarter: 2020Q3

REPORT INFORMATION
  Report Type: Spontaneous
  Country: US (occurrence: US)
  Receive Date: 20200929
  Receipt Date: 20200929
  Transmission Date: 20201103
  Serious: Yes (Disabling)
  Sender: FDA-Public Use
  Company Number: None

PATIENT
  Age: 47 Year
  Sex: Female
  Weight: 69.75 kg

DRUGS (1)
  1. NP THYROID [Suspect]
     Active Substance: LEVOTHYROXINE\LIOTHYRONINE
     Indication: AUTOIMMUNE THYROIDITIS
     Dosage: ?          QUANTITY:90 TABLET(S);?
     Route: 048
     Dates: start: 20200501, end: 20200915

REACTIONS (5)
  - Recalled product administered [None]
  - Product substitution issue [None]
  - Condition aggravated [None]
  - Product measured potency issue [None]
  - Hypothyroidism [None]

NARRATIVE: CASE EVENT DATE: 20200914
